FAERS Safety Report 8306554-7 (Version None)
Quarter: 2012Q2

REPORT INFORMATION
  Report Type: 
  Country: None (occurrence: None)
  Receive Date: 20120420
  Receipt Date: 20120420
  Transmission Date: 20120825
  Serious: Yes (Hospitalization)
  Sender: FDA-Public Use
  Company Number: None

PATIENT
  Age: 57 Year
  Sex: Male
  Weight: 76.7 kg

DRUGS (1)
  1. LINEZOLID [Suspect]
     Indication: STAPHYLOCOCCAL INFECTION
     Dates: end: 20110325

REACTIONS (2)
  - THROMBOCYTOPENIA [None]
  - NEUTROPENIA [None]
